FAERS Safety Report 5244964-5 (Version None)
Quarter: 2007Q1

REPORT INFORMATION
  Report Type: 
  Country: None (occurrence: None)
  Receive Date: 20070221
  Receipt Date: 20070221
  Transmission Date: 20070707
  Serious: Yes (Life-Threatening)
  Sender: FDA-Public Use
  Company Number: None

PATIENT
  Age: 45 Year
  Sex: Male
  Weight: 56.246 kg

DRUGS (1)
  1. LYRICA [Suspect]
     Indication: TEMPORAL LOBE EPILEPSY
     Dosage: 50MG ONCE PO
     Route: 048
     Dates: start: 20070219, end: 20070219

REACTIONS (6)
  - CHEST PAIN [None]
  - CONVULSION [None]
  - HEART RATE DECREASED [None]
  - HEART RATE IRREGULAR [None]
  - LOSS OF CONSCIOUSNESS [None]
  - PALPITATIONS [None]
